FAERS Safety Report 4776299-9 (Version None)
Quarter: 2005Q3

REPORT INFORMATION
  Report Type: 
  Country: None (occurrence: None)
  Receive Date: 20050921
  Receipt Date: 20050908
  Transmission Date: 20060218
  Serious: No
  Sender: FDA-Public Use
  Company Number: 02100-JPN-05-0444

PATIENT
  Age: 70 Year
  Sex: Male

DRUGS (4)
  1. CILOSTAZOL [Suspect]
     Indication: CEREBRAL INFARCTION
     Dosage: 200 MG, ORAL
     Route: 048
     Dates: start: 20040625, end: 20040726
  2. IMIDAPRIL HYDROCHLORIDE [Concomitant]
  3. AMLODIPIEN BESILATE [Concomitant]
  4. WHOLE BLOOD TRANSFUNSION [Concomitant]

REACTIONS (14)
  - ANAEMIA [None]
  - ANOREXIA [None]
  - BLOOD ALKALINE PHOSPHATASE INCREASED [None]
  - BLOOD LACTATE DEHYDROGENASE DECREASED [None]
  - BLOOD PRESSURE DECREASED [None]
  - DECREASED ACTIVITY [None]
  - DEHYDRATION [None]
  - DRY SKIN [None]
  - DUODENAL ULCER HAEMORRHAGE [None]
  - GASTROENTERITIS HELICOBACTER [None]
  - HAEMORRHAGE [None]
  - HELICOBACTER PYLORI IDENTIFICATION TEST POSITIVE [None]
  - RENAL IMPAIRMENT [None]
  - SHOCK [None]
